FAERS Safety Report 4268564-9 (Version None)
Quarter: 2004Q1

REPORT INFORMATION
  Report Type: 
  Country: None (occurrence: None)
  Receive Date: 20040112
  Receipt Date: 20040105
  Transmission Date: 20041129
  Serious: Yes (Other)
  Sender: FDA-Public Use
  Company Number: PHBS2004JP00508

PATIENT
  Sex: Female

DRUGS (1)
  1. TEGRETOL [Suspect]
     Indication: BACK PAIN
     Route: 048

REACTIONS (2)
  - ECZEMA [None]
  - RHABDOMYOLYSIS [None]
